FAERS Safety Report 25715781 (Version 1)
Quarter: 2025Q3

REPORT INFORMATION
  Report Type: Spontaneous
  Country: EU (occurrence: EU)
  Receive Date: 20250822
  Receipt Date: 20250822
  Transmission Date: 20251021
  Serious: Yes (Life-Threatening, Hospitalization, Other)
  Sender: MYLAN
  Company Number: EU-MYLANLABS-2025M1070787

PATIENT
  Age: 72 Year
  Sex: Female

DRUGS (12)
  1. VANCOMYCIN [Suspect]
     Active Substance: VANCOMYCIN
     Indication: Antibiotic prophylaxis
  2. PROPAFENONE [Suspect]
     Active Substance: PROPAFENONE
     Indication: Atrial fibrillation
  3. IBUPROFEN [Suspect]
     Active Substance: IBUPROFEN
     Indication: Dressler^s syndrome
  4. RIVAROXABAN [Suspect]
     Active Substance: RIVAROXABAN
     Indication: Product used for unknown indication
     Dosage: 20 MILLIGRAM, QD
  5. BISOPROLOL [Concomitant]
     Active Substance: BISOPROLOL
     Dosage: 2.5 MILLIGRAM, QD
  6. COLCHICINE [Concomitant]
     Active Substance: COLCHICINE
     Dosage: 0.5 MILLIGRAM, BID (TWICE DAILY)
  7. COLCHICINE [Concomitant]
     Active Substance: COLCHICINE
  8. METHYLPREDNISOLONE [Concomitant]
     Active Substance: METHYLPREDNISOLONE
     Indication: Pleural effusion
     Dosage: 16 MILLIGRAM, BID (TWICE DAILY)
  9. METHYLPREDNISOLONE [Concomitant]
     Active Substance: METHYLPREDNISOLONE
     Indication: Pericardial effusion
     Dosage: 16 MILLIGRAM, BID (TWICE DAILY)
  10. MEROPENEM [Concomitant]
     Active Substance: MEROPENEM
     Dosage: 6 GRAM, QD
  11. DAPTOMYCIN [Concomitant]
     Active Substance: DAPTOMYCIN
     Dosage: 600 MILLIGRAM, QD
  12. GENTAMICIN [Concomitant]
     Active Substance: GENTAMICIN
     Dosage: 240 MILLIGRAM, QD

REACTIONS (5)
  - Syncope [Recovered/Resolved]
  - Vascular device infection [Unknown]
  - Post procedural haematoma [Recovered/Resolved]
  - Drug ineffective for unapproved indication [Unknown]
  - Drug ineffective [Unknown]
